FAERS Safety Report 7581539-7 (Version None)
Quarter: 2011Q2

REPORT INFORMATION
  Report Type: 
  Country: None (occurrence: None)
  Receive Date: 20110629
  Receipt Date: 20110613
  Transmission Date: 20111010
  Serious: Yes (Death)
  Sender: FDA-Public Use
  Company Number: LT-GENENTECH-320328

PATIENT

DRUGS (2)
  1. RITUXIMAB [Suspect]
     Indication: CHRONIC LYMPHOCYTIC LEUKAEMIA
     Dosage: UNK
     Route: 042
  2. METHYLPREDNISOLONE [Suspect]
     Indication: CHRONIC LYMPHOCYTIC LEUKAEMIA
     Dosage: UNK
     Route: 065

REACTIONS (1)
  - GASTROINTESTINAL HAEMORRHAGE [None]
